FAERS Safety Report 22699611 (Version 5)
Quarter: 2023Q4

REPORT INFORMATION
  Report Type: Report from Study
  Country: US (occurrence: US)
  Receive Date: 20230713
  Receipt Date: 20231030
  Transmission Date: 20240109
  Serious: Yes (Other)
  Sender: FDA-Public Use
  Company Number: US-002147023-NVSC2023US155273

PATIENT
  Sex: Male

DRUGS (1)
  1. KESIMPTA [Suspect]
     Active Substance: OFATUMUMAB
     Indication: Multiple sclerosis
     Dosage: UNK (AT 09:00 PM)
     Route: 065

REACTIONS (5)
  - Gallbladder abscess [Unknown]
  - Nausea [Unknown]
  - Hot flush [Unknown]
  - Head discomfort [Unknown]
  - Gallbladder polyp [Unknown]
